FAERS Safety Report 25783589 (Version 1)
Quarter: 2025Q3

REPORT INFORMATION
  Report Type: Report from Study
  Country: JP (occurrence: JP)
  Receive Date: 20250910
  Receipt Date: 20250910
  Transmission Date: 20251020
  Serious: Yes (Other)
  Sender: UCB
  Company Number: JP-UCBJ-CD202511547UCBPHAPROD

PATIENT
  Age: 19 Year
  Sex: Male
  Weight: 42 kg

DRUGS (13)
  1. FENFLURAMINE HYDROCHLORIDE [Suspect]
     Active Substance: FENFLURAMINE HYDROCHLORIDE
     Indication: Lennox-Gastaut syndrome
     Dosage: 0.1 MILLIGRAM/KILOGRAM, 2X/DAY (BID)
     Route: 048
     Dates: start: 20240722, end: 20240826
  2. FENFLURAMINE HYDROCHLORIDE [Suspect]
     Active Substance: FENFLURAMINE HYDROCHLORIDE
     Dosage: 0.2 MILLIGRAM/KILOGRAM, 2X/DAY (BID)
     Route: 048
     Dates: start: 20240826, end: 20241028
  3. FENFLURAMINE HYDROCHLORIDE [Suspect]
     Active Substance: FENFLURAMINE HYDROCHLORIDE
     Dosage: 0.15 MILLIGRAM/KILOGRAM, 2X/DAY (BID)
     Route: 048
     Dates: start: 20241028, end: 20250120
  4. FYCOMPA [Suspect]
     Active Substance: PERAMPANEL
     Indication: Lennox-Gastaut syndrome
     Dosage: 6 MILLIGRAM, ONCE DAILY (QD)
     Route: 048
     Dates: end: 20240826
  5. FYCOMPA [Suspect]
     Active Substance: PERAMPANEL
     Dosage: 5 MILLIGRAM, ONCE DAILY (QD)
     Route: 048
     Dates: start: 20240826
  6. RIVOTRIL [Suspect]
     Active Substance: CLONAZEPAM
     Indication: Lennox-Gastaut syndrome
     Dosage: 40 MILLIGRAM, ONCE DAILY (QD)
     Route: 048
     Dates: end: 20240930
  7. RIVOTRIL [Suspect]
     Active Substance: CLONAZEPAM
     Dosage: 30 MILLIGRAM, ONCE DAILY (QD)
     Route: 048
     Dates: start: 20240930
  8. VALPROATE SODIUM [Concomitant]
     Active Substance: VALPROATE SODIUM
     Indication: Lennox-Gastaut syndrome
     Dosage: 30 MILLILITER, ONCE DAILY (QD)
     Route: 048
  9. VIMPAT [Concomitant]
     Active Substance: LACOSAMIDE
     Indication: Lennox-Gastaut syndrome
     Dosage: 400 MILLIGRAM, ONCE DAILY (QD)
     Route: 048
  10. MONTELUKAST SODIUM [Concomitant]
     Active Substance: MONTELUKAST SODIUM
     Indication: Allergy prophylaxis
     Dosage: 10 MILLIGRAM, ONCE DAILY (QD)
     Route: 048
  11. EPINASTINE HYDROCHLORIDE [Concomitant]
     Active Substance: EPINASTINE HYDROCHLORIDE
     Indication: Allergy prophylaxis
     Dosage: 20 MILLIGRAM, ONCE DAILY (QD)
     Route: 048
  12. AFINITOR [Concomitant]
     Active Substance: EVEROLIMUS
     Indication: Renal perivascular epithelioid cell tumour
     Dosage: 5 MILLIGRAM, ONCE DAILY (QD)
     Route: 048
  13. EVEROLIMUS [Concomitant]
     Active Substance: EVEROLIMUS
     Indication: Product used for unknown indication
     Route: 048

REACTIONS (3)
  - Tricuspid valve incompetence [Unknown]
  - Somnolence [Recovering/Resolving]
  - Decreased appetite [Recovered/Resolved]

NARRATIVE: CASE EVENT DATE: 20240722
